FAERS Safety Report 15418918 (Version 2)
Quarter: 2018Q4

REPORT INFORMATION
  Report Type: Spontaneous
  Country: US (occurrence: US)
  Receive Date: 20180924
  Receipt Date: 20181213
  Transmission Date: 20190204
  Serious: No
  Sender: FDA-Public Use
  Company Number: US-SA-2018SA264091

PATIENT
  Age: 58 Year
  Sex: Male
  Weight: 113.4 kg

DRUGS (2)
  1. DUPIXENT [Suspect]
     Active Substance: DUPILUMAB
     Indication: ECZEMA
     Dosage: 600 MG, 1X
     Route: 058
     Dates: start: 20180718, end: 20180718
  2. DUPIXENT [Suspect]
     Active Substance: DUPILUMAB
     Dosage: 300 MG, QOW
     Route: 058
     Dates: start: 2018, end: 20180826

REACTIONS (5)
  - Speech disorder [Recovered/Resolved]
  - Oropharyngeal pain [Recovered/Resolved]
  - Mouth ulceration [Recovered/Resolved]
  - Oral pain [Recovered/Resolved]
  - Pharyngeal ulceration [Recovered/Resolved]

NARRATIVE: CASE EVENT DATE: 20180807
